FAERS Safety Report 6986667-2 (Version None)
Quarter: 2010Q3

REPORT INFORMATION
  Report Type: 
  Country: None (occurrence: None)
  Receive Date: 20100915
  Receipt Date: 20090720
  Transmission Date: 20110219
  Serious: No
  Sender: FDA-Public Use
  Company Number: US-WYE-H10231909

PATIENT
  Sex: Female
  Weight: 78.09 kg

DRUGS (8)
  1. PRISTIQ [Suspect]
     Indication: DEPRESSION
     Route: 048
     Dates: start: 20090223, end: 20090603
  2. GABAPENTIN [Concomitant]
  3. CORTISONE ACETATE [Concomitant]
  4. MIDOL [Concomitant]
  5. MOBIC [Concomitant]
  6. TOPAMAX [Concomitant]
  7. HYDROCODONE [Concomitant]
  8. PROPRANOLOL [Concomitant]

REACTIONS (6)
  - AGGRESSION [None]
  - DRUG WITHDRAWAL SYNDROME [None]
  - EPISTAXIS [None]
  - INSOMNIA [None]
  - MENORRHAGIA [None]
  - PARAESTHESIA [None]
